FAERS Safety Report 16816832 (Version 1)
Quarter: 2019Q3

REPORT INFORMATION
  Report Type: Spontaneous
  Country: US (occurrence: US)
  Receive Date: 20190725
  Receipt Date: 20190725
  Transmission Date: 20191005
  Serious: No
  Sender: FDA-Public Use
  Company Number: None

PATIENT
  Age: 63 Year
  Sex: Female
  Weight: 60.33 kg

DRUGS (14)
  1. TOPROL XL [Concomitant]
     Active Substance: METOPROLOL SUCCINATE
  2. MELOXICAM. [Concomitant]
     Active Substance: MELOXICAM
  3. CONCERTA [Concomitant]
     Active Substance: METHYLPHENIDATE HYDROCHLORIDE
  4. COQ10 [Concomitant]
     Active Substance: UBIDECARENONE
  5. FISH OIL WITH EPA [Concomitant]
  6. TUMERIC [Concomitant]
     Active Substance: HERBALS\TURMERIC
  7. WELLBUTRIN [Concomitant]
     Active Substance: BUPROPION HYDROCHLORIDE
  8. NORVASE [Concomitant]
  9. LOSARTAN. [Concomitant]
     Active Substance: LOSARTAN
  10. DHA [Concomitant]
     Active Substance: DIETARY SUPPLEMENT
  11. METHYLPHENIDATE HCL ER 54MG TEVA PHARMACEUTICAL [Suspect]
     Active Substance: METHYLPHENIDATE HYDROCHLORIDE
     Indication: CRANIOCEREBRAL INJURY
     Dosage: ?          QUANTITY:1 DF DOSAGE FORM;?
     Route: 048
     Dates: start: 20190713, end: 20190718
  12. MORPHINE SULF XR [Concomitant]
  13. ZEN-PEP [Concomitant]
  14. VITAMIN D3 [Concomitant]
     Active Substance: CHOLECALCIFEROL

REACTIONS (7)
  - Drug ineffective [None]
  - Depressed level of consciousness [None]
  - Memory impairment [None]
  - Loss of personal independence in daily activities [None]
  - Disturbance in attention [None]
  - Product dispensing error [None]
  - Product substitution issue [None]

NARRATIVE: CASE EVENT DATE: 201907
